FAERS Safety Report 8622597-8 (Version None)
Quarter: 2012Q3

REPORT INFORMATION
  Report Type: 
  Country: None (occurrence: None)
  Receive Date: 20120810
  Receipt Date: 20120727
  Transmission Date: 20120928
  Serious: Yes (Hospitalization)
  Sender: FDA-Public Use
  Company Number: NSR_00606_2012

PATIENT
  Age: 11 Month
  Sex: Female

DRUGS (3)
  1. PROPRANOLOL [Suspect]
     Indication: EYELID HAEMANGIOMA
     Dosage: (2 MG/KG, 2MG/KG/D DIVIDED EVERY 8 HOURS ORAL), (0.3 MG/KG, TITRATING UP FROM 0.3 MG/KG/D ORAL)
     Route: 048
  2. PROPRANOLOL [Suspect]
     Indication: EYELID HAEMANGIOMA
     Dosage: (2 MG/KG, 2MG/KG/D DIVIDED EVERY 8 HOURS ORAL), (0.3 MG/KG, TITRATING UP FROM 0.3 MG/KG/D ORAL)
     Route: 048
  3. BENZOCAINE [Concomitant]

REACTIONS (7)
  - BODY TEMPERATURE DECREASED [None]
  - COLD SWEAT [None]
  - BLOOD GLUCOSE DECREASED [None]
  - BLOOD PRESSURE DECREASED [None]
  - PALLOR [None]
  - FEELING COLD [None]
  - UNRESPONSIVE TO STIMULI [None]
